FAERS Safety Report 5486941-5 (Version None)
Quarter: 2007Q4

REPORT INFORMATION
  Report Type: 
  Country: None (occurrence: None)
  Receive Date: 20071016
  Receipt Date: 20071012
  Transmission Date: 20080405
  Serious: Yes (Hospitalization)
  Sender: FDA-Public Use
  Company Number: JP-BRISTOL-MYERS SQUIBB COMPANY-13940036

PATIENT
  Age: 74 Year
  Sex: Female

DRUGS (1)
  1. VEPESID [Suspect]
     Indication: OVARIAN CANCER
     Route: 048
     Dates: start: 20060901

REACTIONS (1)
  - LUNG DISORDER [None]
